FAERS Safety Report 10227234 (Version 7)
Quarter: 2015Q3

REPORT INFORMATION
  Report Type: Report from Study
  Country: UA (occurrence: UA)
  Receive Date: 20140610
  Receipt Date: 20150904
  Transmission Date: 20151125
  Serious: Yes (Hospitalization)
  Sender: FDA-Public Use
  Company Number: UA-JNJFOC-20140511013

PATIENT
  Age: 62 Year
  Sex: Male
  Weight: 88.6 kg

DRUGS (4)
  1. CANAGLIFLOZIN [Suspect]
     Active Substance: CANAGLIFLOZIN
     Indication: TYPE 2 DIABETES MELLITUS
     Route: 048
     Dates: start: 20140422, end: 20140508
  2. PERINDOPRIL [Concomitant]
     Active Substance: PERINDOPRIL
     Indication: HYPERTENSION
     Route: 048
     Dates: start: 2011
  3. INDAPAMIDE. [Concomitant]
     Active Substance: INDAPAMIDE
     Indication: HYPERTENSION
     Route: 048
     Dates: start: 2011
  4. CANAGLIFLOZIN [Suspect]
     Active Substance: CANAGLIFLOZIN
     Route: 048

REACTIONS (1)
  - Ketoacidosis [Recovered/Resolved]

NARRATIVE: CASE EVENT DATE: 20140509
